FAERS Safety Report 6748011-5 (Version None)
Quarter: 2010Q2

REPORT INFORMATION
  Report Type: 
  Country: None (occurrence: None)
  Receive Date: 20100529
  Receipt Date: 20100517
  Transmission Date: 20101027
  Serious: Yes (Hospitalization, Other)
  Sender: FDA-Public Use
  Company Number: US-ASTRAZENECA-2006UW21944

PATIENT
  Age: 13856 Day
  Sex: Male
  Weight: 141.1 kg

DRUGS (27)
  1. SEROQUEL [Suspect]
     Indication: MENTAL DISORDER
     Dosage: 100-200 MG
     Route: 048
     Dates: start: 19990628
  2. SEROQUEL [Suspect]
     Route: 048
     Dates: end: 20010101
  3. SEROQUEL [Suspect]
     Route: 048
     Dates: start: 20030702
  4. ABILIFY [Concomitant]
     Dates: start: 20040101
  5. HALDOL [Concomitant]
     Dates: start: 19880101
  6. NAVANE [Concomitant]
  7. RISPERDAL [Concomitant]
  8. COGENTIN [Concomitant]
     Route: 048
     Dates: start: 19940204
  9. CARDURA [Concomitant]
     Dosage: 2-8 MG
     Route: 048
     Dates: start: 19980714
  10. CATAPRES [Concomitant]
     Dosage: 0.1-0.3 MG
     Route: 048
     Dates: start: 19990518
  11. LITHOBID [Concomitant]
     Dosage: 300-900 MG
     Route: 048
     Dates: start: 19990906
  12. ATIVAN [Concomitant]
     Indication: ANXIETY
     Dosage: 0.5-2 ML
     Route: 030
     Dates: start: 19990906
  13. ATIVAN [Concomitant]
     Route: 048
     Dates: start: 19990906
  14. LOTREL [Concomitant]
     Route: 048
     Dates: start: 19990906
  15. NOVOLIN N [Concomitant]
     Dosage: 10-20 UNITS
     Route: 048
     Dates: start: 19990906
  16. LASIX [Concomitant]
     Dosage: 40-80 MG
     Route: 048
     Dates: start: 19990907
  17. NORVASC [Concomitant]
     Route: 048
     Dates: start: 19990908
  18. KLONOPIN [Concomitant]
     Dosage: 0.5-1 MG
     Route: 048
     Dates: start: 19990914
  19. DIOVAN HCT [Concomitant]
     Dosage: 160-25 MG
     Route: 048
     Dates: start: 19990922
  20. DEPAKOTE [Concomitant]
     Indication: AFFECTIVE DISORDER
     Dosage: 500-1500 MG
     Route: 048
     Dates: start: 19990922, end: 20040521
  21. DEPAKOTE [Concomitant]
     Indication: SCHIZOAFFECTIVE DISORDER
     Dosage: 500-1500 MG
     Route: 048
     Dates: start: 19990922, end: 20040521
  22. K-DUR [Concomitant]
     Route: 048
     Dates: start: 19991126
  23. MINOXIDIL [Concomitant]
     Route: 048
     Dates: start: 19991126
  24. GLUCOTROL [Concomitant]
     Route: 048
     Dates: start: 20000525
  25. LEXAPRO [Concomitant]
     Route: 048
     Dates: start: 20030331
  26. HYDRALAZINE HCL [Concomitant]
     Dosage: 50-100 MG
     Route: 048
     Dates: start: 20030702
  27. ALTACE [Concomitant]
     Route: 048
     Dates: start: 20070403

REACTIONS (3)
  - DIABETES MELLITUS INADEQUATE CONTROL [None]
  - DIABETIC NEUROPATHY [None]
  - TYPE 1 DIABETES MELLITUS [None]
